FAERS Safety Report 8479782-8 (Version None)
Quarter: 2012Q2

REPORT INFORMATION
  Report Type: 
  Country: None (occurrence: None)
  Receive Date: 20120629
  Receipt Date: 20120620
  Transmission Date: 20120825
  Serious: Yes (Other)
  Sender: FDA-Public Use
  Company Number: US-ABBOTT-12P-163-0948606-00

PATIENT
  Sex: Female

DRUGS (6)
  1. RETIN-A [Concomitant]
     Indication: ROSACEA
     Dosage: AT NIGHT, TO FACE, AS NEEDED
     Route: 061
  2. BENZOYL PEROXIDE [Concomitant]
     Indication: ROSACEA
     Dosage: TOPICAL, FOR FACE, AS NEEDED
  3. HUMIRA [Suspect]
  4. HUMIRA [Suspect]
     Indication: PSORIASIS
     Dates: start: 20100601
  5. RETIN-A [Concomitant]
     Dosage: AT NIGHT, TO FACE, DAILY
     Route: 061
  6. BENZOYL PEROXIDE [Concomitant]
     Dosage: FOR FACE, DAILY

REACTIONS (7)
  - PRURITUS [None]
  - UNEVALUABLE EVENT [None]
  - DRUG EFFECT DECREASED [None]
  - DEVICE FAILURE [None]
  - ROSACEA [None]
  - HYPERHIDROSIS [None]
  - PSORIASIS [None]
